FAERS Safety Report 4274285-9 (Version None)
Quarter: 2004Q1

REPORT INFORMATION
  Report Type: 
  Country: None (occurrence: None)
  Receive Date: 20040115
  Receipt Date: 20040107
  Transmission Date: 20041129
  Serious: Yes (Hospitalization)
  Sender: FDA-Public Use
  Company Number: HQWYE195308JAN04

PATIENT
  Sex: Female

DRUGS (1)
  1. ZOSYN [Suspect]
     Indication: ABDOMINAL INFECTION

REACTIONS (1)
  - INTESTINAL PERFORATION [None]
